FAERS Safety Report 6067214-9 (Version None)
Quarter: 2009Q1

REPORT INFORMATION
  Report Type: 
  Country: None (occurrence: None)
  Receive Date: 20090205
  Receipt Date: 20090126
  Transmission Date: 20090719
  Serious: Yes (Other)
  Sender: FDA-Public Use
  Company Number: PHHY2009OM02549

PATIENT
  Age: 64 Year
  Sex: Male

DRUGS (4)
  1. TASIGNA [Suspect]
     Indication: CHRONIC MYELOID LEUKAEMIA
     Dosage: 600 MG/D
     Route: 048
     Dates: start: 20080301
  2. NIFEDIPINE [Concomitant]
     Dosage: UNK
  3. GLICLAZIDE [Concomitant]
     Dosage: UNK
  4. MULTIDRUG THERAPY [Concomitant]

REACTIONS (4)
  - ACUTE CORONARY SYNDROME [None]
  - CHEST PAIN [None]
  - ELECTROCARDIOGRAM ABNORMAL [None]
  - MYOCARDIAL ISCHAEMIA [None]
